FAERS Safety Report 21948261 (Version 1)
Quarter: 2023Q1

REPORT INFORMATION
  Report Type: Spontaneous
  Country: JP (occurrence: JP)
  Receive Date: 20230203
  Receipt Date: 20230203
  Transmission Date: 20230418
  Serious: Yes (Other)
  Sender: FDA-Public Use
  Company Number: JP-PFIZER INC-202201272025

PATIENT
  Age: 51 Year
  Sex: Female
  Weight: 57.5 kg

DRUGS (5)
  1. ZYVOX [Interacting]
     Active Substance: LINEZOLID
     Indication: Postoperative wound infection
     Dosage: 600 MG, 2X/DAY
     Route: 048
     Dates: start: 20221031, end: 20221102
  2. IRINOTECAN HYDROCHLORIDE [Interacting]
     Active Substance: IRINOTECAN HYDROCHLORIDE
     Indication: Colorectal cancer
     Dosage: 190 MG, ONCE EVERY TWO WEEKS
     Route: 042
     Dates: start: 20220203
  3. FLUOROURACIL [Interacting]
     Active Substance: FLUOROURACIL
     Indication: Colorectal cancer
     Dosage: 2900 MG, ONCE EVERY TWO WEEKS
     Route: 042
     Dates: start: 20220203
  4. LINEZOLID [Suspect]
     Active Substance: LINEZOLID
     Indication: Postoperative wound infection
     Dosage: 600 MG, 2X/DAY AFTER BREAKFAST AND DINNER
     Route: 048
     Dates: start: 20221012, end: 20221031
  5. LEVOLEUCOVORIN CALCIUM [Concomitant]
     Active Substance: LEVOLEUCOVORIN CALCIUM
     Indication: Colorectal cancer
     Dosage: 300 MG, ONCE EVERY TWO WEEKS
     Route: 042
     Dates: start: 20220203

REACTIONS (8)
  - Myelosuppression [Recovered/Resolved]
  - Drug interaction [Unknown]
  - Full blood count abnormal [Recovered/Resolved]
  - Platelet count decreased [Recovered/Resolved]
  - C-reactive protein increased [Unknown]
  - Haemoglobin decreased [Unknown]
  - White blood cell count decreased [Recovered/Resolved]
  - Red blood cell count decreased [Unknown]

NARRATIVE: CASE EVENT DATE: 20221102
